FAERS Safety Report 9267722 (Version 1)
Quarter: 2013Q2

REPORT INFORMATION
  Report Type: Spontaneous
  Country: BE (occurrence: BE)
  Receive Date: 20130502
  Receipt Date: 20130502
  Transmission Date: 20140414
  Serious: Yes (Other)
  Sender: FDA-Public Use
  Company Number: BE-ELI_LILLY_AND_COMPANY-BE201304008464

PATIENT
  Age: 70 Year
  Sex: Male

DRUGS (4)
  1. ALIMTA [Suspect]
     Indication: NON-SMALL CELL LUNG CANCER
     Dosage: 500 MG/M2, UNK
     Route: 042
  2. FOLIC ACID [Concomitant]
  3. DEXAMETHASONE [Concomitant]
  4. VITAMIN B12 [Concomitant]

REACTIONS (1)
  - Vasculitis [Unknown]
